FAERS Safety Report 9751102 (Version 1)
Quarter: 2013Q4

REPORT INFORMATION
  Report Type: Spontaneous
  Country: US (occurrence: US)
  Receive Date: 20131212
  Receipt Date: 20131212
  Transmission Date: 20140711
  Serious: No
  Sender: FDA-Public Use
  Company Number: US-TEVA-401633USA

PATIENT
  Age: 17 Year
  Sex: Female
  Weight: 47.22 kg

DRUGS (2)
  1. PARAGARD 380A [Suspect]
     Indication: CONTRACEPTION
     Route: 015
     Dates: start: 20130306, end: 20130404
  2. VITAMINS [Concomitant]
     Indication: NUTRITIONAL SUPPLEMENTATION

REACTIONS (3)
  - Pelvic pain [Not Recovered/Not Resolved]
  - Device expulsion [Recovered/Resolved]
  - Vomiting [Recovered/Resolved]
